FAERS Safety Report 5709440-1 (Version None)
Quarter: 2008Q2

REPORT INFORMATION
  Report Type: 
  Country: None (occurrence: None)
  Receive Date: 20080417
  Receipt Date: 20080417
  Transmission Date: 20081010
  Serious: Yes (Death, Other)
  Sender: FDA-Public Use
  Company Number: None

PATIENT
  Age: 73 Year
  Sex: Female
  Weight: 52.1637 kg

DRUGS (1)
  1. ZETIA [Suspect]
     Indication: BLOOD CHOLESTEROL INCREASED
     Dosage: 30 MG 1 1 X DAY

REACTIONS (4)
  - HYPOAESTHESIA ORAL [None]
  - LIP DRY [None]
  - MOUTH ULCERATION [None]
  - POLYDIPSIA [None]
